FAERS Safety Report 21445480 (Version 1)
Quarter: 2022Q4

REPORT INFORMATION
  Report Type: Spontaneous
  Country: MT (occurrence: MT)
  Receive Date: 20221012
  Receipt Date: 20221012
  Transmission Date: 20230113
  Serious: Yes (Other)
  Sender: FDA-Public Use
  Company Number: MT-NOVARTISPH-NVSC2021MT083875

PATIENT
  Age: 87 Year
  Sex: Female

DRUGS (1)
  1. BEOVU [Interacting]
     Active Substance: BROLUCIZUMAB-DBLL
     Indication: Neovascular age-related macular degeneration
     Dosage: 120 MG, QMO
     Route: 047

REACTIONS (7)
  - Eye inflammation [Recovered/Resolved with Sequelae]
  - Eye contusion [Recovered/Resolved]
  - Eye irritation [Recovered/Resolved]
  - Ocular hyperaemia [Recovered/Resolved]
  - Eye pain [Unknown]
  - Keratic precipitates [Unknown]
  - Retinal thickening [Unknown]
